FAERS Safety Report 7817665-4 (Version None)
Quarter: 2011Q4

REPORT INFORMATION
  Report Type: 
  Country: None (occurrence: None)
  Receive Date: 20111017
  Receipt Date: 20111010
  Transmission Date: 20120403
  Serious: Yes (Other)
  Sender: FDA-Public Use
  Company Number: PHEH2006US11689

PATIENT
  Sex: Female

DRUGS (26)
  1. WARFARIN SODIUM [Concomitant]
     Dosage: 1 TABLET
  2. PREMPRO [Concomitant]
     Dosage: UNK
     Dates: end: 20011024
  3. LIDEX [Concomitant]
  4. LAMICTAL [Concomitant]
     Dosage: 25 MG, DAILY
  5. IBUPROFEN (ADVIL) [Concomitant]
  6. LOVASTATIN [Concomitant]
     Dosage: 40 MG, UNK
     Route: 048
  7. ARIMIDEX [Concomitant]
  8. KEFLEX [Concomitant]
  9. VITAMIN D [Concomitant]
     Dosage: UNK
     Dates: end: 20011024
  10. ARIMIDEX [Concomitant]
     Dosage: UNK
     Dates: start: 20090127
  11. SENNA [Concomitant]
  12. HYDROCODONE BITARTRATE [Concomitant]
  13. MSM [Concomitant]
     Dosage: UNK
     Dates: end: 20011024
  14. TYLENOL-500 [Concomitant]
  15. KEPPRA [Concomitant]
     Dosage: 250, QHS
  16. PENICILLIN V [Concomitant]
  17. CLINDAMYCIN [Concomitant]
  18. LORAZEPAM [Concomitant]
  19. PEPCID [Concomitant]
     Dosage: 1 TABLET, TWICE DAILY AS NEEDED
  20. ZANTAC [Concomitant]
     Dosage: 75 MG, 2 TABLETS DAILY AS NEEDED
  21. AMOXICILLIN [Suspect]
  22. ATENOLOL [Concomitant]
     Dosage: 25 MG, UNK
     Dates: end: 20011024
  23. ZOMETA [Suspect]
     Dates: start: 20040101, end: 20050101
  24. VICODIN [Concomitant]
  25. IBUPROFEN [Concomitant]
  26. PROVERA [Concomitant]

REACTIONS (64)
  - OSTEONECROSIS OF JAW [None]
  - SEROMA [None]
  - SWELLING [None]
  - HYPERTENSION [None]
  - INSOMNIA [None]
  - GENERAL PHYSICAL HEALTH DETERIORATION [None]
  - VULVAL DISORDER [None]
  - MONARTHRITIS [None]
  - TRANSIENT ISCHAEMIC ATTACK [None]
  - NEOPLASM MALIGNANT [None]
  - BREAST CALCIFICATIONS [None]
  - OSTEOMYELITIS [None]
  - DISCOMFORT [None]
  - PRURITUS GENITAL [None]
  - SKIN ATROPHY [None]
  - CONFUSIONAL STATE [None]
  - HYPERCHOLESTEROLAEMIA [None]
  - NEUROPATHY PERIPHERAL [None]
  - JOINT STIFFNESS [None]
  - TOOTH LOSS [None]
  - INJURY [None]
  - BONE DISORDER [None]
  - LYMPHOEDEMA [None]
  - TINEA CRURIS [None]
  - DIABETIC MICROANGIOPATHY [None]
  - NEOPLASM PROGRESSION [None]
  - DEAFNESS [None]
  - FIBROCYSTIC BREAST DISEASE [None]
  - BURSITIS [None]
  - SINUS CONGESTION [None]
  - BACK PAIN [None]
  - SPINAL OSTEOARTHRITIS [None]
  - OSTEOARTHRITIS [None]
  - OEDEMA [None]
  - DEPRESSION [None]
  - METASTASES TO SPINE [None]
  - TOBACCO ABUSE [None]
  - HOT FLUSH [None]
  - BREAST CYST [None]
  - MEMORY IMPAIRMENT [None]
  - HYPOAESTHESIA [None]
  - ARTHRALGIA [None]
  - EXOSTOSIS [None]
  - MUSCULOSKELETAL PAIN [None]
  - BASAL CELL CARCINOMA [None]
  - PURULENT DISCHARGE [None]
  - BONE LESION [None]
  - DECREASED INTEREST [None]
  - FISTULA [None]
  - METASTASES TO BONE [None]
  - RASH [None]
  - LUMBAR SPINAL STENOSIS [None]
  - GAIT DISTURBANCE [None]
  - SYSTEMIC SCLEROSIS [None]
  - INFECTION [None]
  - PRIMARY SEQUESTRUM [None]
  - ABSCESS JAW [None]
  - FACE OEDEMA [None]
  - PAIN [None]
  - URTICARIA [None]
  - ECZEMA [None]
  - TEMPORAL LOBE EPILEPSY [None]
  - BURNING SENSATION [None]
  - NASAL NEOPLASM [None]
